FAERS Safety Report 7085503-6 (Version None)
Quarter: 2010Q4

REPORT INFORMATION
  Report Type: 
  Country: None (occurrence: None)
  Receive Date: 20101105
  Receipt Date: 20101027
  Transmission Date: 20110411
  Serious: Yes (Other)
  Sender: FDA-Public Use
  Company Number: JP-ASTRAZENECA-2010SE51370

PATIENT
  Age: 28 Year
  Sex: Female
  Weight: 62 kg

DRUGS (6)
  1. MARCAINE [Suspect]
     Indication: SPINAL ANAESTHESIA
     Route: 037
  2. XYLOCAINE [Suspect]
     Indication: EPIDURAL ANAESTHESIA
     Dosage: DOSE UNKNOWN
     Route: 008
  3. LANDIOLOL HYDROCHLORIDE [Concomitant]
     Route: 042
  4. FENTANYL [Concomitant]
     Indication: SPINAL ANAESTHESIA
     Route: 029
  5. HESPANDER [Concomitant]
     Route: 065
  6. METHERGINE [Concomitant]
     Route: 041

REACTIONS (4)
  - BLOOD PRESSURE DECREASED [None]
  - DYSPNOEA [None]
  - ELECTROCARDIOGRAM ST SEGMENT DEPRESSION [None]
  - STROKE VOLUME DECREASED [None]
